FAERS Safety Report 5663857-2 (Version None)
Quarter: 2008Q1

REPORT INFORMATION
  Report Type: 
  Country: None (occurrence: None)
  Receive Date: 20080311
  Receipt Date: 20080226
  Transmission Date: 20080703
  Serious: Yes (Other)
  Sender: FDA-Public Use
  Company Number: 2008EU000383

PATIENT
  Age: 84 Year
  Sex: Female
  Weight: 35.3806 kg

DRUGS (2)
  1. VESICARE(SOLIFENACIN) INJECTION [Suspect]
     Dosage: 5 MG, /D, ORAL
     Route: 048
     Dates: start: 20080110, end: 20080115
  2. TELMISARTAN (TELMISARTAN) [Concomitant]

REACTIONS (3)
  - CHEST PAIN [None]
  - DRY MOUTH [None]
  - VISION BLURRED [None]
